FAERS Safety Report 16934789 (Version 1)
Quarter: 2019Q4

REPORT INFORMATION
  Report Type: Spontaneous
  Country: US (occurrence: US)
  Receive Date: 20191018
  Receipt Date: 20191018
  Transmission Date: 20200122
  Serious: Yes (Life-Threatening, Other)
  Sender: FDA-Public Use
  Company Number: US-PFIZER INC-2019438604

PATIENT
  Age: 28 Year
  Sex: Male

DRUGS (4)
  1. PROPOFOL. [Concomitant]
     Active Substance: PROPOFOL
     Indication: SEDATION
     Dosage: UNK (HIGHER AMOUNTS)
  2. CYPROHEPTADINE. [Concomitant]
     Active Substance: CYPROHEPTADINE
     Indication: HYPERTENSION
  3. FENTANYL CITRATE. [Suspect]
     Active Substance: FENTANYL CITRATE
     Indication: SEDATION
     Dosage: UNK (HIGHER AMOUNTS)
  4. CYPROHEPTADINE. [Concomitant]
     Active Substance: CYPROHEPTADINE
     Indication: HYPERTHERMIA
     Dosage: UNK

REACTIONS (1)
  - Serotonin syndrome [Recovering/Resolving]
